FAERS Safety Report 4331042-2 (Version None)
Quarter: 2004Q1

REPORT INFORMATION
  Report Type: 
  Country: None (occurrence: None)
  Receive Date: 20040331
  Receipt Date: 20040323
  Transmission Date: 20041129
  Serious: Yes (Death)
  Sender: FDA-Public Use
  Company Number: 2004UW05824

PATIENT
  Age: 28 Year
  Sex: Male
  Weight: 86.1834 kg

DRUGS (2)
  1. SEROQUEL [Suspect]
     Dosage: 800 MG DAILY PO
     Route: 048
  2. SEROQUEL [Suspect]
     Dosage: 400 MG DAILY PO
     Route: 048

REACTIONS (2)
  - DRUG TOXICITY [None]
  - NEUROLEPTIC MALIGNANT SYNDROME [None]
